FAERS Safety Report 19993724 (Version 1)
Quarter: 2021Q4

REPORT INFORMATION
  Report Type: Spontaneous
  Country: US (occurrence: US)
  Receive Date: 20211026
  Receipt Date: 20211026
  Transmission Date: 20220303
  Serious: No
  Sender: FDA-Public Use
  Company Number: US-TEVA-2021-US-1967890

PATIENT
  Age: 43 Year
  Sex: Female
  Weight: 81.65 kg

DRUGS (2)
  1. AJOVY [Suspect]
     Active Substance: FREMANEZUMAB-VFRM
     Indication: Migraine
     Dosage: INJECTION (AUTOINJECTOR) 225 MG / 1.5 ML
     Route: 065
     Dates: start: 2021
  2. NURTEC ODT [Concomitant]
     Active Substance: RIMEGEPANT SULFATE
     Indication: Migraine

REACTIONS (7)
  - Injection site swelling [Recovering/Resolving]
  - Injection site mass [Recovering/Resolving]
  - Sensitive skin [Unknown]
  - Injection site pain [Unknown]
  - Malabsorption from injection site [Unknown]
  - Wrong technique in product usage process [Recovering/Resolving]
  - Product preparation error [Unknown]

NARRATIVE: CASE EVENT DATE: 20210101
